FAERS Safety Report 22025363 (Version 1)
Quarter: 2023Q1

REPORT INFORMATION
  Report Type: Report from Study
  Country: BR (occurrence: BR)
  Receive Date: 20230223
  Receipt Date: 20230223
  Transmission Date: 20230418
  Serious: Yes (Hospitalization, Other)
  Sender: FDA-Public Use
  Company Number: BR-JNJFOC-20230237876

PATIENT
  Age: 41 Year
  Sex: Female

DRUGS (5)
  1. SIMPONI [Suspect]
     Active Substance: GOLIMUMAB
     Indication: Rheumatoid arthritis
     Route: 058
     Dates: start: 20180206
  2. SIMPONI [Suspect]
     Active Substance: GOLIMUMAB
  3. DEFLAZACORT [Concomitant]
     Active Substance: DEFLAZACORT
  4. OMEPRAZOLE [Concomitant]
     Active Substance: OMEPRAZOLE
  5. CELECOXIB [Concomitant]
     Active Substance: CELECOXIB

REACTIONS (3)
  - Infection [Unknown]
  - Nephrolithiasis [Recovering/Resolving]
  - Rheumatoid arthritis [Unknown]
